FAERS Safety Report 4320902-4 (Version None)
Quarter: 2004Q1

REPORT INFORMATION
  Report Type: 
  Country: None (occurrence: None)
  Receive Date: 20040322
  Receipt Date: 20040322
  Transmission Date: 20041129
  Serious: No
  Sender: FDA-Public Use
  Company Number: None

PATIENT
  Age: 55 Year
  Sex: Female

DRUGS (1)
  1. HCTZ/TRIAMTERENE 50 MG /75 MG [Suspect]
     Indication: HYPERTENSION
     Dosage: 1TAB DAILY ORAL
     Route: 048
     Dates: start: 20031110, end: 20040130

REACTIONS (3)
  - FEELING ABNORMAL [None]
  - HYPERSENSITIVITY [None]
  - NEPHRITIS INTERSTITIAL [None]
